FAERS Safety Report 8911721 (Version 1)
Quarter: 2012Q4

REPORT INFORMATION
  Report Type: 
  Country: FR (occurrence: FR)
  Receive Date: 20121115
  Receipt Date: 20121115
  Transmission Date: 20130627
  Serious: Yes (Other)
  Sender: FDA-Public Use
  Company Number: FR-ABBOTT-12P-056-1006784-00

PATIENT
  Age: 64 Year
  Sex: Male

DRUGS (1)
  1. INFLUVAC [Suspect]
     Indication: ANTIVIRAL PROPHYLAXIS
     Route: 030
     Dates: start: 20121022, end: 20121022

REACTIONS (2)
  - Hyperthermia [Not Recovered/Not Resolved]
  - Drug ineffective [None]
